FAERS Safety Report 12091051 (Version 3)
Quarter: 2016Q1

REPORT INFORMATION
  Report Type: Spontaneous
  Country: GB (occurrence: GB)
  Receive Date: 20160218
  Receipt Date: 20160314
  Transmission Date: 20160526
  Serious: Yes (Disabling, Other)
  Sender: FDA-Public Use
  Company Number: GB-PFIZER INC-2016093857

PATIENT
  Age: 42 Year
  Sex: Male
  Weight: 78 kg

DRUGS (5)
  1. VENLAFAXINE HCL [Suspect]
     Active Substance: VENLAFAXINE HYDROCHLORIDE
     Dosage: UNK
     Dates: start: 20160205
  2. CO-DYDRAMOL [Concomitant]
     Active Substance: ACETAMINOPHEN\DIHYDROCODEINE
     Dosage: 1 OR 2 FOUR TIMES A DAY
     Dates: start: 20151223, end: 20160104
  3. NICOTINE. [Concomitant]
     Active Substance: NICOTINE
     Dosage: 1 DF, 1X/DAY APPLY DAILY.
     Dates: start: 20151208, end: 20151222
  4. ERYTHROMYCIN. [Concomitant]
     Active Substance: ERYTHROMYCIN
     Dosage: 1 DF, 4X/DAY
     Dates: start: 20151223, end: 20151230
  5. OMEPRAZOLE. [Concomitant]
     Active Substance: OMEPRAZOLE
     Dosage: 1 DF, DAILY AS REQUIRED
     Dates: start: 20151111, end: 20151112

REACTIONS (2)
  - Malaise [Recovered/Resolved]
  - Loss of consciousness [Recovered/Resolved]

NARRATIVE: CASE EVENT DATE: 20160205
